FAERS Safety Report 23727270 (Version 1)
Quarter: 2024Q2

REPORT INFORMATION
  Report Type: Spontaneous
  Country: US (occurrence: None)
  Receive Date: 20240409
  Receipt Date: 20240409
  Transmission Date: 20240716
  Serious: No
  Sender: FDA-Public Use
  Company Number: None

PATIENT
  Age: 71 Year
  Sex: Female
  Weight: 41 kg

DRUGS (1)
  1. HECTOROL [Suspect]
     Active Substance: DOXERCALCIFEROL
     Indication: Hyperparathyroidism secondary
     Dosage: OTHER FREQUENCY : EVERY TREATMENT;?
     Route: 040
     Dates: start: 20240401, end: 20240401

REACTIONS (5)
  - Blood pressure increased [None]
  - Dizziness [None]
  - Dyspnoea [None]
  - Heart rate increased [None]
  - Hypersensitivity [None]

NARRATIVE: CASE EVENT DATE: 20240401
